FAERS Safety Report 22042345 (Version 1)
Quarter: 2023Q1

REPORT INFORMATION
  Report Type: Report from Study
  Country: FR (occurrence: FR)
  Receive Date: 20230227
  Receipt Date: 20230227
  Transmission Date: 20230417
  Serious: Yes (Hospitalization, Other)
  Sender: FDA-Public Use
  Company Number: FR-AMGEN-FRACT2023032948

PATIENT
  Age: 59 Year
  Sex: Male
  Weight: 68 kg

DRUGS (7)
  1. CARFILZOMIB [Suspect]
     Active Substance: CARFILZOMIB
     Indication: Plasma cell myeloma
     Dosage: 36.6 MILLIGRAM, PER CHEMO REGIM
     Route: 040
     Dates: start: 20220217
  2. CARFILZOMIB [Suspect]
     Active Substance: CARFILZOMIB
     Dosage: 101.92 MILLIGRAM, PER CHEMO REGIM
     Route: 040
     Dates: start: 20230214
  3. POMALIDOMIDE [Suspect]
     Active Substance: POMALIDOMIDE
     Indication: Plasma cell myeloma
     Dosage: 3 MILLIGRAM, PER CHEMO REGIM
     Route: 048
     Dates: start: 20220217
  4. POMALIDOMIDE [Suspect]
     Active Substance: POMALIDOMIDE
     Dosage: 4 MILLIGRAM, PER CHEMO REGIM
     Route: 048
     Dates: start: 20230214
  5. ISATUXIMAB [Suspect]
     Active Substance: ISATUXIMAB
     Indication: Plasma cell myeloma
     Dosage: 680 MILLIGRAM, PER CHEMO REGIM
     Route: 040
     Dates: start: 20220217
  6. ISATUXIMAB [Suspect]
     Active Substance: ISATUXIMAB
     Dosage: 670 MILLIGRAM, PER CHEMO REGIM
     Route: 040
     Dates: start: 20230214
  7. DEXAMETHASONE [Concomitant]
     Active Substance: DEXAMETHASONE
     Dosage: 40 MILLIGRAM, PER CHEMO REGIM
     Dates: start: 20220217

REACTIONS (2)
  - Pyelonephritis [Not Recovered/Not Resolved]
  - Acute kidney injury [Not Recovered/Not Resolved]

NARRATIVE: CASE EVENT DATE: 20230214
